FAERS Safety Report 19192730 (Version 6)
Quarter: 2023Q1

REPORT INFORMATION
  Report Type: Spontaneous
  Country: JP (occurrence: JP)
  Receive Date: 20210429
  Receipt Date: 20230317
  Transmission Date: 20230418
  Serious: Yes (Other)
  Sender: FDA-Public Use
  Company Number: JP-BAYER-2021-115171

PATIENT
  Sex: Male

DRUGS (7)
  1. EYLEA [Suspect]
     Active Substance: AFLIBERCEPT
     Indication: Diabetic retinal oedema
     Dosage: BOTH EYES,2MG; SOLUTION FOR INJECTION IN PRE-FILLED SYRINGE, 40 MG/ML
     Route: 031
     Dates: start: 20210219
  2. EYLEA [Suspect]
     Active Substance: AFLIBERCEPT
     Dosage: BOTH EYES, ONCE(0.05ML); SOLUTION FOR INJECTION IN PRE-FILLED SYRINGE, 40 MG/ML
     Route: 031
     Dates: start: 20210326, end: 20210326
  3. EYLEA [Suspect]
     Active Substance: AFLIBERCEPT
     Dosage: BOTH EYES,2MG; SOLUTION FOR INJECTION IN PRE-FILLED SYRINGE, 40 MG/ML
     Route: 031
     Dates: start: 20210430
  4. COSOPT [Concomitant]
     Active Substance: DORZOLAMIDE HYDROCHLORIDE\TIMOLOL MALEATE
     Indication: Glaucoma
     Dosage: BOTH EYES, TWICE PER DAY
     Route: 031
  5. BROMFENAC SODIUM [Concomitant]
     Active Substance: BROMFENAC SODIUM
     Indication: Conjunctivitis
     Dosage: BOTH EYES, TWICE PER DAY
     Route: 031
     Dates: start: 20210129
  6. DIQUAFOSOL TETRASODIUM [Concomitant]
     Active Substance: DIQUAFOSOL TETRASODIUM
     Indication: Dry eye
     Dosage: BOTH EYES, SIX PER DAY
     Route: 031
     Dates: start: 20210507
  7. LATANOPROST [Concomitant]
     Active Substance: LATANOPROST
     Indication: Glaucoma
     Dosage: RIGHT EYE, ONCE PER DAY
     Route: 031
     Dates: end: 20210327

REACTIONS (9)
  - Visual impairment [Recovered/Resolved]
  - Visual impairment [Recovered/Resolved]
  - Visual field defect [Unknown]
  - Device use issue [Recovered/Resolved]
  - Retinal artery occlusion [Recovering/Resolving]
  - Retinal artery occlusion [Recovering/Resolving]
  - Retinal artery occlusion [Recovered/Resolved]
  - Intraocular pressure increased [Recovered/Resolved]
  - Inappropriate schedule of product administration [Recovered/Resolved]

NARRATIVE: CASE EVENT DATE: 20210326
